FAERS Safety Report 6241034-4 (Version None)
Quarter: 2009Q2

REPORT INFORMATION
  Report Type: 
  Country: None (occurrence: None)
  Receive Date: 20090623
  Receipt Date: 20090614
  Transmission Date: 20091009
  Serious: Yes (Disabling)
  Sender: FDA-Public Use
  Company Number: US-AVENTIS-200915239US

PATIENT
  Age: 76 Year
  Sex: Female

DRUGS (3)
  1. TAXOTERE [Suspect]
     Dosage: DOSE: UNK
     Route: 042
     Dates: start: 20090301, end: 20090301
  2. CRESTOR [Concomitant]
     Dosage: DOSE: UNK
  3. SYNTHROID [Concomitant]
     Indication: THYROID DISORDER
     Dosage: DOSE: UNK

REACTIONS (4)
  - ABASIA [None]
  - OEDEMA PERIPHERAL [None]
  - PARAESTHESIA [None]
  - PERIPHERAL COLDNESS [None]
